FAERS Safety Report 8785711 (Version 2)
Quarter: 2012Q4

REPORT INFORMATION
  Report Type: 
  Country: JP (occurrence: JP)
  Receive Date: 20120914
  Receipt Date: 20120924
  Transmission Date: 20130627
  Serious: Yes (Hospitalization, Other)
  Sender: FDA-Public Use
  Company Number: JP-JNJFOC-20120903630

PATIENT
  Age: 6 None
  Sex: Male

DRUGS (2)
  1. REMICADE [Suspect]
     Indication: COLITIS ULCERATIVE
     Route: 042
     Dates: start: 20120528
  2. REMICADE [Suspect]
     Indication: COLITIS ULCERATIVE
     Dosage: 4th dose
     Route: 042
     Dates: start: 20120903

REACTIONS (2)
  - Cerebral infarction [Recovering/Resolving]
  - Asthenia [Unknown]
